FAERS Safety Report 7799546-8 (Version None)
Quarter: 2011Q4

REPORT INFORMATION
  Report Type: 
  Country: None (occurrence: None)
  Receive Date: 20111006
  Receipt Date: 20111006
  Transmission Date: 20120403
  Serious: Yes (Other)
  Sender: FDA-Public Use
  Company Number: None

PATIENT
  Age: 37 Year
  Sex: Female
  Weight: 89.357 kg

DRUGS (2)
  1. HIZENTRA [Concomitant]
  2. HIZENTRA [Suspect]
     Indication: HYPOGAMMAGLOBULINAEMIA
     Dosage: 50 ML
     Route: 058
     Dates: start: 20110805, end: 20111005

REACTIONS (6)
  - BONE PAIN [None]
  - WEIGHT INCREASED [None]
  - ALOPECIA [None]
  - NAUSEA [None]
  - HEADACHE [None]
  - ARTHRALGIA [None]
